FAERS Safety Report 9106284 (Version 1)
Quarter: 2013Q1

REPORT INFORMATION
  Report Type: Report from Study
  Country: US (occurrence: US)
  Receive Date: 20130221
  Receipt Date: 20130221
  Transmission Date: 20140127
  Serious: Yes (Other)
  Sender: FDA-Public Use
  Company Number: US-PFIZER INC-2013064942

PATIENT
  Age: 39 Year
  Sex: Female
  Weight: 90.7 kg

DRUGS (12)
  1. LYRICA [Suspect]
     Dosage: UNK
  2. TRAMADOL HCL [Interacting]
     Dosage: 50 MG, [1 EVERY 4 DAYS AS NEEDED]
     Dates: start: 1983
  3. TRAMADOL HCL [Interacting]
     Dosage: 25 MG, [1 EVERY 2 DAYS AS NEEDED]
  4. LORAZEPAM [Interacting]
     Dosage: UNK
  5. DEPAKOTE [Interacting]
     Dosage: 500 MG, UNK
     Dates: start: 1996, end: 2012
  6. HUMIRA [Interacting]
     Indication: PSORIATIC ARTHROPATHY
     Dosage: 40 MG, 1 IN 1 WEEK
     Dates: start: 2011
  7. CYMBALTA [Interacting]
     Dosage: UNK
  8. ARAVA [Concomitant]
     Dosage: UNK
  9. LEVOTHYROXINE [Concomitant]
     Dosage: UNK
  10. OMEPRAZOLE [Concomitant]
     Dosage: UNK
  11. TYLENOL [Concomitant]
     Dosage: UNK
  12. ADVAIR [Concomitant]
     Dosage: UNK

REACTIONS (12)
  - Feeling abnormal [Unknown]
  - Respiratory depression [Unknown]
  - Respiratory depression [Unknown]
  - Arrhythmia [Unknown]
  - Asthma [Unknown]
  - Nocturia [Unknown]
  - Bladder disorder [Unknown]
  - Bladder spasm [Unknown]
  - Drug intolerance [Unknown]
  - Blood pressure increased [Unknown]
  - Drug interaction [Unknown]
  - Adverse reaction [Unknown]
